FAERS Safety Report 10463460 (Version 1)
Quarter: 2014Q3

REPORT INFORMATION
  Report Type: Spontaneous
  Country: US (occurrence: US)
  Receive Date: 20140919
  Receipt Date: 20140919
  Transmission Date: 20150326
  Serious: Yes (Hospitalization, Other)
  Sender: FDA-Public Use
  Company Number: US-TEVA-509792USA

PATIENT
  Age: 31 Year
  Sex: Female

DRUGS (8)
  1. CIPROFLOXACIN. [Suspect]
     Active Substance: CIPROFLOXACIN
     Route: 048
  2. ZIPRASIDONE [Suspect]
     Active Substance: ZIPRASIDONE
     Indication: AGITATION
     Dosage: FOR 4 DOSES
     Route: 048
  3. TRAZODONE [Suspect]
     Active Substance: TRAZODONE HYDROCHLORIDE
     Dosage: AT BEDTIME FOR 3 DOSES
     Route: 048
  4. HALOPERIDOL. [Suspect]
     Active Substance: HALOPERIDOL
     Indication: AGITATION
     Route: 030
  5. HALOPERIDOL. [Suspect]
     Active Substance: HALOPERIDOL
     Indication: AGITATION
     Dosage: AS NEEDED; FOR 4 DOSES
     Route: 042
  6. METOPROLOL [Concomitant]
     Active Substance: METOPROLOL
     Route: 065
  7. HALOPERIDOL. [Suspect]
     Active Substance: HALOPERIDOL
     Indication: AGITATION
     Route: 030
  8. FUROSEMIDE. [Suspect]
     Active Substance: FUROSEMIDE
     Indication: DIURETIC THERAPY
     Dosage: 40 MG/DAY FOR 4 DOSES
     Route: 042

REACTIONS (3)
  - Hypomagnesaemia [Recovered/Resolved]
  - Torsade de pointes [Recovered/Resolved]
  - Off label use [Recovered/Resolved]
